FAERS Safety Report 12764191 (Version 1)
Quarter: 2016Q3

REPORT INFORMATION
  Report Type: Spontaneous
  Country: US (occurrence: US)
  Receive Date: 20160920
  Receipt Date: 20160920
  Transmission Date: 20161109
  Serious: Yes (Death)
  Sender: FDA-Public Use
  Company Number: US-ALLERGAN-1669018US

PATIENT
  Age: 42 Year
  Sex: Female

DRUGS (2)
  1. BOTOX [Suspect]
     Active Substance: ONABOTULINUMTOXINA
     Indication: BLEPHAROSPASM
     Dosage: 100 UNK, UNK
     Route: 030
  2. BOTOX [Suspect]
     Active Substance: ONABOTULINUMTOXINA
     Indication: FACIAL SPASM

REACTIONS (1)
  - Death [Fatal]
